FAERS Safety Report 6291624-8 (Version None)
Quarter: 2009Q3

REPORT INFORMATION
  Report Type: 
  Country: None (occurrence: None)
  Receive Date: 20090730
  Receipt Date: 20090730
  Transmission Date: 20100115
  Serious: No
  Sender: FDA-Public Use
  Company Number: None

PATIENT
  Age: 71 Year
  Sex: Male
  Weight: 99.7913 kg

DRUGS (1)
  1. TEGADERM [Suspect]

REACTIONS (3)
  - APPLICATION SITE DERMATITIS [None]
  - DERMATITIS CONTACT [None]
  - PROCEDURAL PAIN [None]
